FAERS Safety Report 24859159 (Version 1)
Quarter: 2025Q1

REPORT INFORMATION
  Report Type: Spontaneous
  Country: PT (occurrence: PT)
  Receive Date: 20250118
  Receipt Date: 20250118
  Transmission Date: 20250409
  Serious: Yes (Hospitalization)
  Sender: CADILA
  Company Number: PT-CPL-004889

PATIENT
  Age: 56 Year
  Sex: Female

DRUGS (10)
  1. OLANZAPINE [Suspect]
     Active Substance: OLANZAPINE
     Indication: Schizophrenia
  2. VALPROIC ACID [Concomitant]
     Active Substance: VALPROIC ACID
  3. PALIPERIDONE [Concomitant]
     Active Substance: PALIPERIDONE
  4. LORAZEPAM [Concomitant]
     Active Substance: LORAZEPAM
  5. OXAZEPAM [Concomitant]
     Active Substance: OXAZEPAM
  6. TRAZODONE [Concomitant]
     Active Substance: TRAZODONE HYDROCHLORIDE
  7. CLONAZEPAM [Concomitant]
     Active Substance: CLONAZEPAM
  8. TRAZODONE [Concomitant]
     Active Substance: TRAZODONE HYDROCHLORIDE
  9. PALIPERIDONE [Concomitant]
     Active Substance: PALIPERIDONE
  10. OLANZAPINE [Suspect]
     Active Substance: OLANZAPINE
     Indication: Schizophrenia

REACTIONS (1)
  - Trichoglossia [Recovered/Resolved]
